FAERS Safety Report 21121636 (Version 3)
Quarter: 2022Q4

REPORT INFORMATION
  Report Type: Spontaneous
  Country: US (occurrence: US)
  Receive Date: 20220722
  Receipt Date: 20221017
  Transmission Date: 20230112
  Serious: Yes (Hospitalization)
  Sender: FDA-Public Use
  Company Number: US-KARYOPHARM-2022KPT000794

PATIENT

DRUGS (2)
  1. XPOVIO [Suspect]
     Active Substance: SELINEXOR
     Indication: Soft tissue neoplasm
     Dosage: 60 MG, 2X/WEEK
     Route: 048
     Dates: start: 20220523
  2. XPOVIO [Suspect]
     Active Substance: SELINEXOR
     Indication: Connective tissue neoplasm

REACTIONS (7)
  - Superior vena cava syndrome [Unknown]
  - Frequent bowel movements [Unknown]
  - Dysgeusia [Unknown]
  - Retching [Not Recovered/Not Resolved]
  - Nausea [Not Recovered/Not Resolved]
  - Asthenia [Unknown]
  - Off label use [Unknown]

NARRATIVE: CASE EVENT DATE: 20220101
